FAERS Safety Report 15405183 (Version 1)
Quarter: 2018Q3

REPORT INFORMATION
  Report Type: Report from Study
  Country: BR (occurrence: BR)
  Receive Date: 20180920
  Receipt Date: 20180920
  Transmission Date: 20181010
  Serious: Yes (Other)
  Sender: FDA-Public Use
  Company Number: BR-ROCHE-2089804

PATIENT
  Age: 25 Year
  Sex: Female
  Weight: 51.7 kg

DRUGS (1)
  1. MABTHERA [Suspect]
     Active Substance: RITUXIMAB
     Indication: RHEUMATOID ARTHRITIS
     Dosage: 08/MAR/2018, LATEST INFUSION
     Route: 042
     Dates: start: 20180221

REACTIONS (3)
  - Blood pressure increased [Unknown]
  - Hypersensitivity [Unknown]
  - Abdominal pain [Unknown]

NARRATIVE: CASE EVENT DATE: 20180308
